FAERS Safety Report 17489257 (Version 2)
Quarter: 2020Q1

REPORT INFORMATION
  Report Type: Report from Study
  Country: IT (occurrence: IT)
  Receive Date: 20200303
  Receipt Date: 20200306
  Transmission Date: 20200409
  Serious: Yes (Death, Disabling)
  Sender: FDA-Public Use
  Company Number: IT-PFIZER INC-2020093017

PATIENT
  Age: 69 Year
  Sex: Female
  Weight: 63 kg

DRUGS (1)
  1. LORLATINIB [Suspect]
     Active Substance: LORLATINIB
     Dosage: 100 MG, DAILY (25MG 4 TIMES DAILY)
     Route: 048
     Dates: start: 20190415, end: 20190729

REACTIONS (1)
  - Neoplasm progression [Fatal]

NARRATIVE: CASE EVENT DATE: 20190729
